FAERS Safety Report 24005999 (Version 1)
Quarter: 2024Q2

REPORT INFORMATION
  Report Type: Spontaneous
  Country: PL (occurrence: PL)
  Receive Date: 20240624
  Receipt Date: 20240624
  Transmission Date: 20240716
  Serious: Yes (Other)
  Sender: FDA-Public Use
  Company Number: None

PATIENT
  Age: 62 Year
  Sex: Male
  Weight: 70 kg

DRUGS (4)
  1. OXALIPLATIN [Suspect]
     Active Substance: OXALIPLATIN
     Dosage: 153 MG
     Route: 042
     Dates: start: 20200107
  2. FLUOROURACIL [Suspect]
     Active Substance: FLUOROURACIL
     Dosage: 2160 MG
     Route: 040
     Dates: start: 20200107
  3. FLUOROURACIL [Suspect]
     Active Substance: FLUOROURACIL
     Dosage: 720 MG
     Route: 040
     Dates: start: 20200107
  4. LEUCOVORIN [Concomitant]
     Active Substance: LEUCOVORIN\LEUCOVORIN CALCIUM
     Dosage: 260 MG
     Route: 040
     Dates: start: 20200107

REACTIONS (1)
  - Urinary tract infection [Recovering/Resolving]

NARRATIVE: CASE EVENT DATE: 20200225
